FAERS Safety Report 4282410-9 (Version None)
Quarter: 2004Q1

REPORT INFORMATION
  Report Type: 
  Country: None (occurrence: None)
  Receive Date: 20040129
  Receipt Date: 20040126
  Transmission Date: 20041129
  Serious: Yes (Other)
  Sender: FDA-Public Use
  Company Number: TCI2003A02418

PATIENT
  Age: 67 Year
  Sex: Female

DRUGS (3)
  1. LANSAP 800 (LANSOPRAZOLE, CLARITHROMYCIN, AMOXICILLIN) (PREPARATION FO [Suspect]
     Indication: HELICOBACTER INFECTION
     Dosage: 1 CARD (0.5 CARD, 2 IN 1 D)
     Route: 048
     Dates: start: 20030609, end: 20030611
  2. NORVASC (AMLODIPINE BESILATE) (TABLETS) [Concomitant]
  3. NIFLAN (PRANOPROFEN) (EYE DROPS) [Concomitant]

REACTIONS (1)
  - ANGLE CLOSURE GLAUCOMA [None]
